FAERS Safety Report 9516551 (Version 1)
Quarter: 2013Q1

REPORT INFORMATION
  Report Type: Spontaneous
  Country: US (occurrence: None)
  Receive Date: 20130305
  Receipt Date: 20130305
  Transmission Date: 20140127
  Serious: Yes (Hospitalization, Other)
  Sender: FDA-Public Use
  Company Number: 163-21880-12113824

PATIENT
  Age: 76 Year
  Sex: Male

DRUGS (5)
  1. REVLIMID (LENALIDOMIDE) (25 MILLIGRAM, CAPSULES) [Suspect]
     Dosage: 25 MG, 21 IN 28 D, PO
     Route: 048
     Dates: start: 20120712
  2. VITAMINS [Concomitant]
  3. FISH OIL (FISH OIL) [Concomitant]
  4. VELCADE (BORTEZOMIB) [Concomitant]
  5. ASPIRIN (ACETYLSALICYLIC ACID) [Concomitant]

REACTIONS (1)
  - Eczema [None]
